FAERS Safety Report 17078117 (Version 4)
Quarter: 2020Q1

REPORT INFORMATION
  Report Type: Report from Study
  Country: US (occurrence: US)
  Receive Date: 20191126
  Receipt Date: 20200204
  Transmission Date: 20200409
  Serious: Yes (Other)
  Sender: FDA-Public Use
  Company Number: US-GILEAD-2019-0439563

PATIENT
  Age: 35 Year
  Sex: Female
  Weight: 50.3 kg

DRUGS (8)
  1. AMBRISENTAN [Suspect]
     Active Substance: AMBRISENTAN
     Indication: PULMONARY ARTERIAL HYPERTENSION
     Dosage: 5 MG, QD
     Route: 048
     Dates: start: 20171128, end: 20191111
  2. BILBERRY [VACCINIUM MYRTILLUS FRUIT] [Concomitant]
  3. UPTRAVI [Concomitant]
     Active Substance: SELEXIPAG
  4. ADEMPAS [Concomitant]
     Active Substance: RIOCIGUAT
  5. GARLIC [ALLIUM SATIVUM BULB] [Concomitant]
  6. SILDENAFIL. [Concomitant]
     Active Substance: SILDENAFIL
  7. VELETRI [Concomitant]
     Active Substance: EPOPROSTENOL
  8. MAGNESIUM [Concomitant]
     Active Substance: MAGNESIUM

REACTIONS (1)
  - Maternal exposure during pregnancy [Not Recovered/Not Resolved]

NARRATIVE: CASE EVENT DATE: 20191105
